FAERS Safety Report 18155924 (Version 1)
Quarter: 2020Q3

REPORT INFORMATION
  Report Type: Spontaneous
  Country: PT (occurrence: PT)
  Receive Date: 20200817
  Receipt Date: 20200817
  Transmission Date: 20201103
  Serious: Yes (Other)
  Sender: FDA-Public Use
  Company Number: PT-VISTAPHARM, INC.-VER202008-001356

PATIENT
  Age: 32 Year
  Sex: Female

DRUGS (12)
  1. AZATHIOPRINE. [Concomitant]
     Active Substance: AZATHIOPRINE
     Dosage: 100 MG/D
  2. PREDNISOLONE. [Suspect]
     Active Substance: PREDNISOLONE
     Dosage: 10 MG/D
  3. PREDNISOLONE. [Suspect]
     Active Substance: PREDNISOLONE
     Dosage: 2.5 MG/D
  4. AZATHIOPRINE. [Concomitant]
     Active Substance: AZATHIOPRINE
     Indication: IMMUNOSUPPRESSION
     Dosage: 2 MG/KG/D
  5. ASPIRIN. [Concomitant]
     Active Substance: ASPIRIN
     Indication: POLYARTERITIS NODOSA
     Dosage: 100 MG/D
  6. PREDNISOLONE. [Suspect]
     Active Substance: PREDNISOLONE
     Indication: POLYARTERITIS NODOSA
     Dosage: 1 MG/KG PER DAY
  7. METHOTREXATE. [Concomitant]
     Active Substance: METHOTREXATE
     Indication: IMMUNOSUPPRESSION
     Dosage: 20 MG/WK
  8. MYCOPHENOLATE MOFETIL. [Concomitant]
     Active Substance: MYCOPHENOLATE MOFETIL
     Indication: IMMUNOSUPPRESSION
     Dosage: UNKNOWN
  9. IMMUNOGLOBULIN [Concomitant]
     Indication: IMMUNOSUPPRESSION
     Dosage: 2 G/KG PER MONTH
  10. CYCLOPHOSPHAMIDE. [Concomitant]
     Active Substance: CYCLOPHOSPHAMIDE
     Dosage: UNKNOWN
     Route: 048
  11. CYCLOPHOSPHAMIDE. [Concomitant]
     Active Substance: CYCLOPHOSPHAMIDE
     Indication: PRODUCT USED FOR UNKNOWN INDICATION
     Dosage: UNKNOWN
     Route: 042
  12. INFLIXIMAB [Concomitant]
     Active Substance: INFLIXIMAB
     Indication: IMMUNOSUPPRESSION
     Dosage: 5 MG/KG, EVERY 6 WEEKS

REACTIONS (10)
  - Growth retardation [Unknown]
  - Cervical dysplasia [Unknown]
  - Paronychia [Unknown]
  - Osteoporotic fracture [Unknown]
  - Cushingoid [Unknown]
  - Barrett^s oesophagus [Unknown]
  - Staphylococcal osteomyelitis [Unknown]
  - Finger amputation [Unknown]
  - Anogenital warts [Unknown]
  - Papilloma viral infection [Unknown]
